FAERS Safety Report 10509468 (Version 6)
Quarter: 2015Q1

REPORT INFORMATION
  Report Type: Report from Study
  Country: KR (occurrence: KR)
  Receive Date: 20141009
  Receipt Date: 20150311
  Transmission Date: 20150720
  Serious: Yes (Hospitalization, Other)
  Sender: FDA-Public Use
  Company Number: PHHO2014KR007286

PATIENT
  Age: 51 Year
  Sex: Female
  Weight: 57 kg

DRUGS (174)
  1. LEVETIRACETAM. [Concomitant]
     Active Substance: LEVETIRACETAM
     Indication: PROPHYLAXIS
     Dosage: 500 MG, BID
     Route: 048
     Dates: start: 20140516, end: 20140518
  2. LEVETIRACETAM. [Concomitant]
     Active Substance: LEVETIRACETAM
     Dosage: 25 MG, QD
     Route: 030
     Dates: start: 20140702, end: 20140702
  3. HUMAN INSULIN [Concomitant]
     Active Substance: INSULIN HUMAN
     Dosage: 4 U, QD
     Route: 058
     Dates: start: 20140521, end: 20140522
  4. HUMAN INSULIN [Concomitant]
     Active Substance: INSULIN HUMAN
     Dosage: 4 U, TID
     Route: 058
     Dates: start: 20140527, end: 20140527
  5. CEFTRIAXONE. [Concomitant]
     Active Substance: CEFTRIAXONE
     Dosage: 1 DF (2), BID
     Route: 042
     Dates: start: 20140619, end: 20140702
  6. PROPACETAMOL [Concomitant]
     Active Substance: PROPACETAMOL
     Indication: PYREXIA
     Dosage: 1000 ML, QD
     Route: 042
     Dates: start: 20140517, end: 20140523
  7. PROPACETAMOL [Concomitant]
     Active Substance: PROPACETAMOL
     Dosage: 1000 MG, QD
     Route: 042
     Dates: start: 20140720, end: 20140720
  8. ALBUMINE [Concomitant]
     Indication: PRODUCT USED FOR UNKNOWN INDICATION
     Dosage: 100 ML, QD
     Route: 042
     Dates: start: 20140517, end: 20140517
  9. ALBUMINE [Concomitant]
     Dosage: 100 MG, QD
     Route: 042
     Dates: start: 20140701, end: 20140701
  10. TRAMADOL HCL [Concomitant]
     Active Substance: TRAMADOL HYDROCHLORIDE
     Dosage: 50 MG, QD
     Route: 030
     Dates: start: 20140719, end: 20140719
  11. COUGH SYRUP [Concomitant]
     Active Substance: DEXTROMETHORPHAN HYDROBROMIDE\GUAIFENESIN
     Indication: PRODUCT USED FOR UNKNOWN INDICATION
     Dosage: 20 ML, TID
     Route: 048
     Dates: start: 20140521, end: 20140530
  12. INSULIN LISPRO [Concomitant]
     Active Substance: INSULIN LISPRO
     Indication: DIABETES MELLITUS
     Dosage: 6 U, BID
     Route: 058
     Dates: start: 20140520, end: 20140521
  13. INSULIN LISPRO [Concomitant]
     Active Substance: INSULIN LISPRO
     Dosage: 8 U, QD
     Route: 058
     Dates: start: 20140526, end: 20140526
  14. INSULIN LISPRO [Concomitant]
     Active Substance: INSULIN LISPRO
     Dosage: 6 U, QD
     Route: 058
     Dates: start: 20140710, end: 20140710
  15. INSULIN LISPRO [Concomitant]
     Active Substance: INSULIN LISPRO
     Dosage: 4 U, QD
     Route: 058
     Dates: start: 20140719, end: 20140719
  16. ZIPEPROL [Concomitant]
     Active Substance: ZIPEPROL
     Dosage: 10 MG, TID
     Route: 048
     Dates: start: 20140530
  17. GUAIFENESIN. [Concomitant]
     Active Substance: GUAIFENESIN
     Indication: COUGH
     Dosage: 200 MG, TID
     Route: 048
     Dates: start: 20140530, end: 20140701
  18. SMOFKABIVEN [Concomitant]
     Active Substance: UNSPECIFIED INGREDIENT
     Dosage: 1448 MG, QD
     Route: 042
     Dates: start: 20140626, end: 20140626
  19. SMOFKABIVEN [Concomitant]
     Active Substance: UNSPECIFIED INGREDIENT
     Dosage: 1448 MG, QD
     Route: 042
     Dates: start: 20140704, end: 20140705
  20. SMOFKABIVEN [Concomitant]
     Active Substance: UNSPECIFIED INGREDIENT
     Dosage: 1448 ML, QD
     Route: 042
     Dates: start: 20140729, end: 20140729
  21. MANNITOL. [Concomitant]
     Active Substance: MANNITOL
     Dosage: 100 ML, TID
     Route: 042
     Dates: start: 20140701, end: 20140701
  22. METOCLOPRAMIDE HYDROCHLORIDE. [Concomitant]
     Active Substance: METOCLOPRAMIDE HYDROCHLORIDE
     Indication: NAUSEA
     Dosage: 10 MG, TID
     Route: 042
     Dates: start: 20140729, end: 20140729
  23. METFORMIN HCL [Concomitant]
     Active Substance: METFORMIN HYDROCHLORIDE
     Indication: DIABETES MELLITUS
     Dosage: 500 MG, UNK
     Dates: start: 20140428, end: 20140503
  24. HUMAN INSULIN [Concomitant]
     Active Substance: INSULIN HUMAN
     Dosage: 4 U, QD
     Route: 058
     Dates: start: 20140526, end: 20140526
  25. CEFTRIAXONE. [Concomitant]
     Active Substance: CEFTRIAXONE
     Dosage: 1 DF (2), BID
     Route: 042
     Dates: start: 20140518, end: 20140518
  26. MAGNESIUM OXIDE. [Concomitant]
     Active Substance: MAGNESIUM OXIDE
     Dosage: 500 MG, TID
     Route: 048
     Dates: start: 20140730
  27. VASOPRESSIN. [Concomitant]
     Active Substance: VASOPRESSIN
     Indication: URINE OUTPUT
     Dosage: 1 U, QD
     Route: 058
     Dates: start: 20140521, end: 20140521
  28. CALCIUM CHLORIDE. [Concomitant]
     Active Substance: CALCIUM CHLORIDE
     Dosage: 600 ML, QD
     Route: 042
     Dates: start: 20140701, end: 20140701
  29. INSULIN LISPRO [Concomitant]
     Active Substance: INSULIN LISPRO
     Dosage: 4 U, QD
     Route: 058
     Dates: start: 20140709, end: 20140709
  30. INSULIN LISPRO [Concomitant]
     Active Substance: INSULIN LISPRO
     Dosage: 6 U, QD
     Route: 058
     Dates: start: 20140713, end: 20140713
  31. INSULIN LISPRO [Concomitant]
     Active Substance: INSULIN LISPRO
     Dosage: 4 U, QD
     Route: 058
     Dates: start: 20140714, end: 20140715
  32. DULCOLAX [Concomitant]
     Active Substance: BISACODYL OR DOCUSATE SODIUM
     Indication: CONSTIPATION
     Dosage: 1 DF, BID (1 T 2/ DAY)
     Route: 048
     Dates: start: 20140528, end: 20140528
  33. SMOFKABIVEN [Concomitant]
     Active Substance: UNSPECIFIED INGREDIENT
     Indication: NUTRITIONAL SUPPLEMENTATION
     Dosage: 1448 MG, QD
     Route: 042
     Dates: start: 20140516, end: 20140519
  34. PETHIDINE [Concomitant]
     Active Substance: MEPERIDINE
     Indication: PAIN
     Dosage: 25 MG, QD
     Route: 042
     Dates: start: 20140618, end: 20140618
  35. ULTRACET [Concomitant]
     Active Substance: ACETAMINOPHEN\TRAMADOL HYDROCHLORIDE
     Indication: PAIN
     Dosage: 1 DF, BID (TABLET)
     Route: 048
     Dates: start: 20140620, end: 20140622
  36. CARBOXYMETHYLCELLULOSE SODIUM. [Concomitant]
     Active Substance: CARBOXYMETHYLCELLULOSE SODIUM
     Indication: DRY EYE
     Dosage: 2 MG, QD
     Route: 061
     Dates: start: 20140620, end: 20140625
  37. MANNITOL. [Concomitant]
     Active Substance: MANNITOL
     Dosage: 100 MG, QID
     Route: 042
     Dates: start: 20140630, end: 20140630
  38. CIMETIDINE [Concomitant]
     Active Substance: CIMETIDINE
     Dosage: 200 MG, QD
     Route: 042
     Dates: start: 20140630, end: 20140701
  39. MASI [Concomitant]
     Indication: SUPPLEMENTATION THERAPY
     Dosage: 4 G, QD
     Route: 042
     Dates: start: 20140629, end: 20140629
  40. URSA [Concomitant]
     Indication: ASPARTATE AMINOTRANSFERASE INCREASED
     Dosage: 100 MG, TID
     Route: 048
     Dates: start: 20140717
  41. LINEZOLID. [Concomitant]
     Active Substance: LINEZOLID
     Indication: INFECTION PROPHYLAXIS
     Dosage: 600 MG, BID
     Route: 042
     Dates: start: 20140717, end: 20140730
  42. POTASSIUM PHOSPHATE MONOBASIC [Concomitant]
     Active Substance: POTASSIUM PHOSPHATE, MONOBASIC
     Dosage: 20 ML, QD
     Route: 042
     Dates: start: 20140525, end: 20140525
  43. LEVETIRACETAM. [Concomitant]
     Active Substance: LEVETIRACETAM
     Dosage: 250 MG, BID
     Route: 048
     Dates: start: 20140525, end: 20140605
  44. LEVETIRACETAM. [Concomitant]
     Active Substance: LEVETIRACETAM
     Dosage: 500 MG, BID
     Route: 048
     Dates: start: 20140611
  45. LEVETIRACETAM. [Concomitant]
     Active Substance: LEVETIRACETAM
     Dosage: 25 MG, QD
     Route: 030
     Dates: start: 20140629, end: 20140629
  46. KETOROLAC TROMETHAMINE. [Concomitant]
     Active Substance: KETOROLAC TROMETHAMINE
     Indication: PRODUCT USED FOR UNKNOWN INDICATION
     Dosage: 30 MG, TID
     Route: 042
     Dates: start: 20140516, end: 20140517
  47. HYDROCORTISONE SODIUM SUCCINATE [Concomitant]
     Active Substance: HYDROCORTISONE SODIUM SUCCINATE
     Dosage: 100 MG, QD
     Route: 042
     Dates: start: 20140625, end: 20140625
  48. RANIONE [Concomitant]
     Indication: DYSPEPSIA
     Dosage: 1 DF (TABLET), BID
     Route: 048
     Dates: start: 20140518
  49. BISACODYL. [Concomitant]
     Active Substance: BISACODYL
     Indication: PRODUCT USED FOR UNKNOWN INDICATION
     Dosage: 1 DF, QD (1 T/DAY SUPPO)
     Route: 065
     Dates: start: 20140517, end: 20140517
  50. POTASSIUM CHLORIDE. [Concomitant]
     Active Substance: POTASSIUM CHLORIDE
     Indication: HYPOKALAEMIA
     Dosage: 600 MG, TID
     Route: 048
     Dates: start: 20140523
  51. BUDESONIDE. [Concomitant]
     Active Substance: BUDESONIDE
     Indication: PRODUCT USED FOR UNKNOWN INDICATION
     Dosage: (1 PACK 1/DAY DRN)
     Route: 065
     Dates: start: 20140523, end: 20140525
  52. CALCIUM CHLORIDE. [Concomitant]
     Active Substance: CALCIUM CHLORIDE
     Indication: PRODUCT USED FOR UNKNOWN INDICATION
     Dosage: 1200 MG, QD
     Route: 042
     Dates: start: 20140524, end: 20140524
  53. INSULIN LISPRO [Concomitant]
     Active Substance: INSULIN LISPRO
     Dosage: 10 U, QD
     Route: 058
     Dates: start: 20140524, end: 20140524
  54. INSULIN LISPRO [Concomitant]
     Active Substance: INSULIN LISPRO
     Dosage: 4 U, QD
     Route: 058
     Dates: start: 20140721, end: 20140722
  55. TRAMADOL [Concomitant]
     Active Substance: TRAMADOL
     Indication: PAIN
     Dosage: 50 MG, QD
     Route: 042
     Dates: start: 20140618, end: 20140618
  56. TRAMADOL [Concomitant]
     Active Substance: TRAMADOL
     Dosage: 50 MG, QD
     Route: 042
     Dates: start: 20140620, end: 20140620
  57. VOLULYTE [Concomitant]
     Indication: PROPHYLAXIS
     Dosage: 1000 MG, QD
     Route: 042
     Dates: start: 20140625, end: 20140716
  58. DEXAMETHASONE. [Concomitant]
     Active Substance: DEXAMETHASONE
     Indication: URINE OUTPUT
     Dosage: 5 MG, BID
     Route: 042
     Dates: start: 20140628, end: 20140629
  59. ERDOSTEINE [Concomitant]
     Active Substance: ERDOSTEINE
     Indication: PRODUCTIVE COUGH
     Dosage: 300 MG, TID
     Route: 048
     Dates: start: 20140717
  60. CEFAZOLIN [Concomitant]
     Active Substance: CEFAZOLIN
     Indication: INFECTION
     Dosage: 1 G, QD
     Route: 042
     Dates: start: 20140728, end: 20140728
  61. PITAVASTATIN [Concomitant]
     Active Substance: PITAVASTATIN
     Indication: HYPERCHOLESTEROLAEMIA
     Dosage: 2 MG, (SID)
     Route: 048
     Dates: start: 20140507, end: 20140515
  62. HUMAN INSULIN [Concomitant]
     Active Substance: INSULIN HUMAN
     Dosage: 4 U, QD
     Route: 058
     Dates: start: 20140605, end: 20140605
  63. ONDANSETRON HYDROCHLORIDE DIHYDRATE [Concomitant]
     Active Substance: ONDANSETRON HYDROCHLORIDE
     Indication: PRODUCT USED FOR UNKNOWN INDICATION
     Dosage: 4 M, QD
     Route: 042
     Dates: start: 20140516, end: 20140516
  64. FENTANYL. [Concomitant]
     Active Substance: FENTANYL
     Indication: PAIN
     Dosage: 2.1 MG, QD
     Route: 042
     Dates: start: 20140516, end: 20140516
  65. PROPACETAMOL [Concomitant]
     Active Substance: PROPACETAMOL
     Dosage: 1000 MG, QD
     Route: 042
     Dates: start: 20140725, end: 20140725
  66. DULCOLAX [Concomitant]
     Active Substance: BISACODYL OR DOCUSATE SODIUM
     Dosage: 1 DF, QD  (TABLET)
     Route: 054
     Dates: start: 20140630, end: 20140630
  67. LEVOTHYROXINE [Concomitant]
     Active Substance: LEVOTHYROXINE
     Indication: CUSHING^S SYNDROME
     Dosage: 0.1 MG, QD
     Route: 048
     Dates: start: 20140523
  68. PERIOLIMEL [Concomitant]
     Indication: NUTRITIONAL SUPPLEMENTATION
     Dosage: 1 DF, (1.5) QD
     Route: 042
     Dates: start: 20140618, end: 20140618
  69. TRAMADOL [Concomitant]
     Active Substance: TRAMADOL
     Dosage: 50 MG, QD
     Route: 030
     Dates: start: 20140719, end: 20140719
  70. GINKO BILOBA [Concomitant]
     Active Substance: GINKGO
     Dosage: 80 MG, TID
     Route: 048
     Dates: start: 20140622
  71. CLOPIDOGREL [Concomitant]
     Active Substance: CLOPIDOGREL BISULFATE
     Indication: PROPHYLAXIS
     Dosage: 300 MG, QD
     Route: 048
     Dates: start: 20140625, end: 20140625
  72. CLOPIDOGREL [Concomitant]
     Active Substance: CLOPIDOGREL BISULFATE
     Dosage: 75 MG, QD
     Route: 048
     Dates: start: 20140626
  73. DEXAMETHASONE. [Concomitant]
     Active Substance: DEXAMETHASONE
     Dosage: 5 MG, BID
     Route: 042
     Dates: start: 20140630, end: 20140701
  74. CIMETIDINE [Concomitant]
     Active Substance: CIMETIDINE
     Indication: PROPHYLAXIS
     Dosage: 200 MG, TID
     Route: 048
     Dates: start: 20140626, end: 20140627
  75. CIMETIDINE [Concomitant]
     Active Substance: CIMETIDINE
     Dosage: 200 MG, BID
     Route: 042
     Dates: start: 20140628, end: 20140629
  76. LASIX [Concomitant]
     Active Substance: FUROSEMIDE
     Indication: URINE OUTPUT
     Dosage: 5 MG, QD
     Route: 042
     Dates: start: 20140718, end: 20140718
  77. VILDAGLIPTIN [Concomitant]
     Active Substance: VILDAGLIPTIN
     Dosage: 50 MG, BID
     Route: 048
     Dates: start: 20140517
  78. VANCOMYCIN HCL [Concomitant]
     Active Substance: VANCOMYCIN HYDROCHLORIDE
     Indication: PRODUCT USED FOR UNKNOWN INDICATION
     Dosage: 1 G, BID
     Route: 042
     Dates: start: 20140522, end: 20140523
  79. POTASSIUM PHOSPHATE MONOBASIC [Concomitant]
     Active Substance: POTASSIUM PHOSPHATE, MONOBASIC
     Indication: PRODUCT USED FOR UNKNOWN INDICATION
     Dosage: 20 ML, QD
     Route: 042
     Dates: start: 20140516, end: 20140516
  80. HUMAN INSULIN [Concomitant]
     Active Substance: INSULIN HUMAN
     Dosage: 4 U, TID
     Route: 058
     Dates: start: 20140705, end: 20140705
  81. PETHIDINE HCL [Concomitant]
     Dosage: 25 MG, QD
     Route: 042
     Dates: start: 20140618, end: 20140618
  82. FENTANYL. [Concomitant]
     Active Substance: FENTANYL
     Dosage: 2.1 MG, QD
     Route: 042
     Dates: start: 20140729, end: 20140729
  83. MAGNESIUM OXIDE. [Concomitant]
     Active Substance: MAGNESIUM OXIDE
     Indication: PRODUCT USED FOR UNKNOWN INDICATION
     Dosage: 500 MG, TID
     Route: 048
     Dates: start: 20140518
  84. MEFENAMIC ACID. [Concomitant]
     Active Substance: MEFENAMIC ACID
     Indication: PAIN
     Dosage: 250 MG, TID
     Route: 048
     Dates: start: 20140518
  85. MEFENAMIC ACID. [Concomitant]
     Active Substance: MEFENAMIC ACID
     Dosage: 250 MG, QD
     Route: 048
     Dates: start: 20140622, end: 20140622
  86. DEXAMETHASONE SODIUM PHOSPHATE. [Concomitant]
     Active Substance: DEXAMETHASONE SODIUM PHOSPHATE
     Dosage: 5 MG, BID
     Route: 042
     Dates: start: 20140523, end: 20140523
  87. NOREPINEPHRINE BITARTRATE. [Concomitant]
     Active Substance: NOREPINEPHRINE BITARTRATE
     Dosage: 8 MG QD
     Route: 042
     Dates: start: 20140518, end: 20140518
  88. PROPACETAMOL [Concomitant]
     Active Substance: PROPACETAMOL
     Dosage: 1000 MG, QD
     Route: 042
     Dates: start: 20140701, end: 20140707
  89. PROPACETAMOL [Concomitant]
     Active Substance: PROPACETAMOL
     Dosage: 1000 MG, QD
     Route: 042
     Dates: start: 20140727, end: 20140728
  90. VASOPRESSIN. [Concomitant]
     Active Substance: VASOPRESSIN
     Dosage: 2 U, QD
     Route: 058
     Dates: start: 20140521, end: 20140527
  91. VASOPRESSIN. [Concomitant]
     Active Substance: VASOPRESSIN
     Dosage: 2 U, QD
     Route: 042
     Dates: start: 20140713, end: 20140713
  92. SALBUTAMOL SULFATE [Concomitant]
     Active Substance: ALBUTEROL SULFATE
     Indication: PRODUCT USED FOR UNKNOWN INDICATION
     Dosage: (1 PACK 1/DAY DRN)
     Route: 065
     Dates: start: 20140523, end: 20140525
  93. INSULIN LISPRO [Concomitant]
     Active Substance: INSULIN LISPRO
     Dosage: 6 U, QD
     Route: 058
     Dates: start: 20140529, end: 20140531
  94. INSULIN LISPRO [Concomitant]
     Active Substance: INSULIN LISPRO
     Dosage: 6 U, QD
     Route: 058
     Dates: start: 20140603, end: 20140603
  95. INSULIN LISPRO [Concomitant]
     Active Substance: INSULIN LISPRO
     Dosage: 6 U, QD
     Route: 058
     Dates: start: 20140626, end: 20140626
  96. INSULIN LISPRO [Concomitant]
     Active Substance: INSULIN LISPRO
     Dosage: 6 U, QD
     Route: 058
     Dates: start: 20140702, end: 20140702
  97. INSULIN LISPRO [Concomitant]
     Active Substance: INSULIN LISPRO
     Dosage: 4 U, QD
     Route: 058
     Dates: start: 20140716, end: 20140716
  98. PSEUDOEPHEDRINE HYDROCHLORIDE. [Concomitant]
     Active Substance: PSEUDOEPHEDRINE HYDROCHLORIDE
     Indication: PRODUCT USED FOR UNKNOWN INDICATION
     Dosage: 60 MG, TID
     Route: 048
     Dates: start: 20140526, end: 20140530
  99. TRAMADOL [Concomitant]
     Active Substance: TRAMADOL
     Dosage: 50 MG, QD
     Route: 042
     Dates: start: 20140622, end: 20140622
  100. ASPIRINE PROTECT [Concomitant]
     Active Substance: ASPIRIN
     Indication: PROPHYLAXIS
     Dosage: 100 MG, QD
     Route: 048
     Dates: start: 20140625, end: 20140625
  101. MASI [Concomitant]
     Dosage: 16 G, QD
     Route: 042
     Dates: start: 20140629, end: 20140630
  102. ROSUVASTATIN CALCIUM. [Concomitant]
     Active Substance: ROSUVASTATIN CALCIUM
     Indication: HYPERCHOLESTEROLAEMIA
     Dosage: 20 MG, QD
     Route: 048
     Dates: start: 20140717
  103. ADELAVIN [Concomitant]
     Indication: LIVER FUNCTION TEST ABNORMAL
     Dosage: 2 ML, QD
     Route: 042
     Dates: start: 20140717, end: 20140717
  104. TEICOPLANIN [Concomitant]
     Active Substance: TEICOPLANIN
     Indication: INFECTION PROPHYLAXIS
     Dosage: 400 MG, QD
     Route: 042
     Dates: start: 20140718, end: 20140718
  105. MUCOMYST [Concomitant]
     Active Substance: ACETYLCYSTEINE
     Indication: PRODUCTIVE COUGH
     Dosage: 800 MG,
     Route: 065
     Dates: start: 20140720
  106. VILDAGLIPTIN [Concomitant]
     Active Substance: VILDAGLIPTIN
     Dosage: 50 MG, BID
     Route: 048
     Dates: start: 20140611
  107. LEVETIRACETAM. [Concomitant]
     Active Substance: LEVETIRACETAM
     Dosage: 500 MG, QD
     Route: 042
     Dates: start: 20140524, end: 20140524
  108. HUMAN INSULIN [Concomitant]
     Active Substance: INSULIN HUMAN
     Dosage: 4 U, QD
     Route: 058
     Dates: start: 20140531, end: 20140531
  109. HUMAN INSULIN [Concomitant]
     Active Substance: INSULIN HUMAN
     Dosage: 4 U, BID
     Route: 058
     Dates: start: 20140608, end: 20140608
  110. HUMAN INSULIN [Concomitant]
     Active Substance: INSULIN HUMAN
     Dosage: 4 U, QD
     Route: 058
     Dates: start: 20140610, end: 20140611
  111. HUMAN INSULIN [Concomitant]
     Active Substance: INSULIN HUMAN
     Dosage: 4 U, BID
     Route: 058
     Dates: start: 20140704, end: 20140704
  112. FAMOTIDINE. [Concomitant]
     Active Substance: FAMOTIDINE
     Dosage: 20 MG, BID
     Route: 042
     Dates: start: 20140728, end: 20140728
  113. PETHIDINE HCL [Concomitant]
     Indication: PAIN
     Dosage: 25 MG, QD
     Route: 030
     Dates: start: 20140516, end: 20140516
  114. NIMODIPINE. [Concomitant]
     Active Substance: NIMODIPINE
     Indication: PRODUCT USED FOR UNKNOWN INDICATION
     Dosage: 50 MG, QD
     Route: 042
     Dates: start: 20140516, end: 20140522
  115. HYDROCORTISONE SODIUM SUCCINATE [Concomitant]
     Active Substance: HYDROCORTISONE SODIUM SUCCINATE
     Indication: PROPHYLAXIS
     Dosage: 50 MG, QD
     Route: 042
     Dates: start: 20140517, end: 20140525
  116. PROPACETAMOL [Concomitant]
     Active Substance: PROPACETAMOL
     Dosage: 1000 MG, QD
     Route: 042
     Dates: start: 20140619, end: 20140622
  117. PROPACETAMOL [Concomitant]
     Active Substance: PROPACETAMOL
     Dosage: 1000 MG, QD
     Route: 042
     Dates: start: 20140722, end: 20140722
  118. VASOPRESSIN. [Concomitant]
     Active Substance: VASOPRESSIN
     Dosage: 2 U, QD
     Route: 042
     Dates: start: 20140702, end: 20140702
  119. CHLORPHENAMIMINE MALEATE [Concomitant]
     Indication: PRODUCT USED FOR UNKNOWN INDICATION
     Dosage: 4 MG, BID
     Route: 042
     Dates: start: 20140523, end: 20140523
  120. CHLORPHENAMIMINE MALEATE [Concomitant]
     Dosage: 2 MG, QD
     Route: 042
     Dates: start: 20140525, end: 20140525
  121. INSULIN LISPRO [Concomitant]
     Active Substance: INSULIN LISPRO
     Dosage: 6 U, BID
     Route: 058
     Dates: start: 20140706, end: 20140707
  122. INSULIN LISPRO [Concomitant]
     Active Substance: INSULIN LISPRO
     Dosage: 4 U, BID
     Route: 058
     Dates: start: 20140711, end: 20140712
  123. INSULIN LISPRO [Concomitant]
     Active Substance: INSULIN LISPRO
     Dosage: 4 U, BID
     Route: 058
     Dates: start: 20140718, end: 20140718
  124. CODEIN [Concomitant]
     Active Substance: CODEINE
     Dosage: 20 MG, BID
     Route: 048
     Dates: start: 20140530
  125. CIPROFLOXACIN HCL [Concomitant]
     Active Substance: CIPROFLOXACIN HYDROCHLORIDE
     Indication: INFECTION PROPHYLAXIS
     Dosage: 250 MG, BID
     Route: 048
     Dates: start: 20140611
  126. LACTULON//LACTULOSE [Concomitant]
     Dosage: 15 ML, TID
     Route: 048
     Dates: start: 20140720
  127. NEFOPAM [Concomitant]
     Active Substance: NEFOPAM
     Indication: PAIN
     Dosage: 100 MG, QD
     Route: 042
     Dates: start: 20140620, end: 20140620
  128. BROMHEXIN [Concomitant]
     Active Substance: BROMHEXINE
     Indication: PRODUCTIVE COUGH
     Dosage: 8 MG, TID
     Route: 048
     Dates: start: 20140704
  129. GODEX [Concomitant]
     Indication: LIVER FUNCTION TEST ABNORMAL
     Dosage: 2 DF, (CAPSULE) BID
     Route: 048
     Dates: start: 20140717
  130. SOM230 [Suspect]
     Active Substance: PASIREOTIDE
     Indication: PITUITARY-DEPENDENT CUSHING^S SYNDROME
     Dosage: 0.9 MG, BID
     Route: 058
     Dates: start: 20140414, end: 20140515
  131. PITAVASTATIN [Concomitant]
     Active Substance: PITAVASTATIN
     Dosage: 2 MG, QD
     Route: 048
     Dates: start: 20140517, end: 20140627
  132. LEVETIRACETAM. [Concomitant]
     Active Substance: LEVETIRACETAM
     Dosage: 500 MG, QD
     Route: 048
     Dates: start: 20140605
  133. HUMAN INSULIN [Concomitant]
     Active Substance: INSULIN HUMAN
     Indication: DIABETES MELLITUS
     Dosage: 4 U, QD
     Route: 058
     Dates: start: 20140520, end: 20140520
  134. HUMAN INSULIN [Concomitant]
     Active Substance: INSULIN HUMAN
     Dosage: 4 U, BID
     Route: 058
     Dates: start: 20140528, end: 20140529
  135. HUMAN INSULIN [Concomitant]
     Active Substance: INSULIN HUMAN
     Dosage: 4 U, QD
     Route: 058
     Dates: start: 20140607, end: 20140607
  136. FAMOTIDINE. [Concomitant]
     Active Substance: FAMOTIDINE
     Dosage: 10 MG, BID
     Route: 048
     Dates: start: 20140729
  137. PETHIDINE HCL [Concomitant]
     Dosage: 50 MG, QD
     Route: 030
     Dates: start: 20140516, end: 20140516
  138. ACETYLCYSTEINE. [Concomitant]
     Active Substance: ACETYLCYSTEINE
     Indication: PRODUCT USED FOR UNKNOWN INDICATION
     Dosage: 600 MG, TID
     Route: 042
     Dates: start: 20140516, end: 20140517
  139. DEXAMETHASONE SODIUM PHOSPHATE. [Concomitant]
     Active Substance: DEXAMETHASONE SODIUM PHOSPHATE
     Indication: BLOOD CORTICOTROPHIN
     Dosage: 5 MG, QD
     Route: 042
     Dates: start: 20140517, end: 20140517
  140. DEXAMETHASONE SODIUM PHOSPHATE. [Concomitant]
     Active Substance: DEXAMETHASONE SODIUM PHOSPHATE
     Dosage: 5 MG, QD
     Route: 042
     Dates: start: 20140626, end: 20140626
  141. NOREPINEPHRINE BITARTRATE. [Concomitant]
     Active Substance: NOREPINEPHRINE BITARTRATE
     Indication: PRODUCT USED FOR UNKNOWN INDICATION
     Dosage: 32 MG, QD
     Route: 042
     Dates: start: 20140517, end: 20140517
  142. PROPACETAMOL [Concomitant]
     Active Substance: PROPACETAMOL
     Dosage: 1000 MG, QD
     Route: 042
     Dates: start: 20140624, end: 20140625
  143. PROPACETAMOL [Concomitant]
     Active Substance: PROPACETAMOL
     Dosage: 1000 MG, QD
     Route: 042
     Dates: start: 20140722, end: 20140722
  144. PROPACETAMOL [Concomitant]
     Active Substance: PROPACETAMOL
     Dosage: 1000 MG, QD
     Route: 042
     Dates: start: 20140731
  145. TRAMADOL HCL [Concomitant]
     Active Substance: TRAMADOL HYDROCHLORIDE
     Indication: PYREXIA
     Dosage: 50 MG, QD
     Route: 030
     Dates: start: 20140521, end: 20140521
  146. RHINATHIOL [Concomitant]
     Indication: PRODUCT USED FOR UNKNOWN INDICATION
     Dosage: 500 MG, TID
     Route: 048
     Dates: start: 20140526, end: 20140530
  147. CODEIN [Concomitant]
     Active Substance: CODEINE
     Indication: PRODUCT USED FOR UNKNOWN INDICATION
     Dosage: 10 MG, QD
     Route: 048
     Dates: start: 20140527, end: 20140530
  148. VOLULYTE [Concomitant]
     Dosage: 500 ML, QD
     Route: 042
     Dates: start: 20140701, end: 20140701
  149. DEXAMETHASONE. [Concomitant]
     Active Substance: DEXAMETHASONE
     Indication: BLOOD CORTICOTROPHIN ABNORMAL
     Dosage: 5 MG, QD
     Route: 042
     Dates: start: 20140626, end: 20140627
  150. VILDAGLIPTIN [Concomitant]
     Active Substance: VILDAGLIPTIN
     Indication: DIABETES MELLITUS
     Dosage: 50 MG, BID
     Route: 048
     Dates: start: 20140507, end: 20140516
  151. HUMAN INSULIN [Concomitant]
     Active Substance: INSULIN HUMAN
     Dosage: 4 U, QD
     Route: 058
     Dates: start: 20140524, end: 20140524
  152. HUMAN INSULIN [Concomitant]
     Active Substance: INSULIN HUMAN
     Dosage: 4 U, BID
     Route: 058
     Dates: start: 20140601, end: 20140602
  153. HUMAN INSULIN [Concomitant]
     Active Substance: INSULIN HUMAN
     Dosage: 4 U, QD
     Route: 058
     Dates: start: 20140706, end: 20140707
  154. HUMAN INSULIN [Concomitant]
     Active Substance: INSULIN HUMAN
     Dosage: 4 U, BID
     Route: 058
     Dates: start: 20140708, end: 20140708
  155. FAMOTIDINE. [Concomitant]
     Active Substance: FAMOTIDINE
     Indication: PROPHYLAXIS
     Dosage: 20 MG, BID
     Route: 042
     Dates: start: 20140516, end: 20140520
  156. CEFTRIAXONE. [Concomitant]
     Active Substance: CEFTRIAXONE
     Indication: INFECTION PROPHYLAXIS
     Dosage: 2 G, QD
     Route: 042
     Dates: start: 20140516, end: 20140531
  157. HYDROCORTISONE SODIUM SUCCINATE [Concomitant]
     Active Substance: HYDROCORTISONE SODIUM SUCCINATE
     Dosage: 100 MG, QD
     Route: 042
     Dates: start: 20140518, end: 20140519
  158. PANTOPRAZOLE SODIUM [Concomitant]
     Active Substance: PANTOPRAZOLE SODIUM
     Indication: PRODUCT USED FOR UNKNOWN INDICATION
     Dosage: 40 MG, QD
     Route: 042
     Dates: start: 20140517, end: 20140519
  159. DIAZEPAM. [Concomitant]
     Active Substance: DIAZEPAM
     Indication: PRODUCT USED FOR UNKNOWN INDICATION
     Dosage: 5 MG, QD
     Route: 042
     Dates: start: 20140524, end: 20140524
  160. INSULIN LISPRO [Concomitant]
     Active Substance: INSULIN LISPRO
     Dosage: 6 U, BID
     Route: 058
     Dates: start: 20140522, end: 20140523
  161. INSULIN LISPRO [Concomitant]
     Active Substance: INSULIN LISPRO
     Dosage: 6 U, QD
     Route: 058
     Dates: start: 20140606, end: 20140607
  162. INSULIN LISPRO [Concomitant]
     Active Substance: INSULIN LISPRO
     Dosage: 6 U, QD
     Route: 058
     Dates: start: 20140704, end: 20140704
  163. DULCOLAX [Concomitant]
     Active Substance: BISACODYL OR DOCUSATE SODIUM
     Dosage: 1 DF, QD  (TABLET)
     Route: 048
     Dates: start: 20140624, end: 20140624
  164. LEVOTHYROXINE [Concomitant]
     Active Substance: LEVOTHYROXINE
     Indication: BLOOD THYROID STIMULATING HORMONE
     Dosage: 0.01 MG, QD
     Route: 048
     Dates: start: 20140611
  165. GINKO BILOBA [Concomitant]
     Active Substance: GINKGO
     Indication: HEARING IMPAIRED
     Dosage: 80 MG, BID
     Route: 048
     Dates: start: 20140621, end: 20140622
  166. LACTULON//LACTULOSE [Concomitant]
     Indication: CONSTIPATION
     Dosage: 15 ML, TID
     Route: 048
     Dates: start: 20140706
  167. LACTULON//LACTULOSE [Concomitant]
     Dosage: 15 ML, QD
     Route: 048
     Dates: start: 20140725
  168. MANNITOL. [Concomitant]
     Active Substance: MANNITOL
     Indication: PAPILLOEDEMA
     Dosage: 100 MG, QW
     Route: 042
     Dates: start: 20140625, end: 20140630
  169. ASPIRINE PROTECT [Concomitant]
     Active Substance: ASPIRIN
     Dosage: 100 MG, QD
     Route: 048
     Dates: start: 20140626
  170. HIDROCORTISONA KLONAL//HYDROCORTISONE SODIUM SUCCINATE [Concomitant]
     Indication: PROPHYLAXIS
     Dosage: 100 MG, QD
     Route: 042
     Dates: start: 20140625, end: 20140625
  171. PHENYLEPHRINE [Concomitant]
     Active Substance: PHENYLEPHRINE\PHENYLEPHRINE HYDROCHLORIDE
     Indication: BLOOD PRESSURE ABNORMAL
     Dosage: 10 MG, BID
     Route: 042
     Dates: start: 20140627, end: 20140627
  172. PHENYLEPHRINE [Concomitant]
     Active Substance: PHENYLEPHRINE\PHENYLEPHRINE HYDROCHLORIDE
     Dosage: 50 MG, QD
     Route: 042
     Dates: start: 20140628, end: 20140630
  173. NEFOPAM HYDROCHLORIDE [Concomitant]
     Active Substance: NEFOPAM HYDROCHLORIDE
     Indication: PAIN
     Dosage: 20 MG, TID
     Route: 042
     Dates: start: 20140729, end: 20140729
  174. MYPOL [Concomitant]
     Indication: PROPHYLAXIS
     Dosage: 1 DF, (CAPSULE) TID
     Route: 048
     Dates: start: 20140729

REACTIONS (3)
  - Cerebrospinal fluid leakage [Recovered/Resolved with Sequelae]
  - Meningitis [Recovered/Resolved with Sequelae]
  - Diabetes mellitus [Not Recovered/Not Resolved]

NARRATIVE: CASE EVENT DATE: 20140418
